FAERS Safety Report 10784536 (Version 1)
Quarter: 2015Q1

REPORT INFORMATION
  Report Type: Spontaneous
  Country: US (occurrence: None)
  Receive Date: 20150209
  Receipt Date: 20150209
  Transmission Date: 20150721
  Serious: Yes (Hospitalization)
  Sender: FDA-Public Use
  Company Number: None

PATIENT
  Age: 68 Year
  Sex: Female
  Weight: 65.77 kg

DRUGS (2)
  1. ALENDRONATE [Suspect]
     Active Substance: ALENDRONATE SODIUM
     Indication: OSTEOPENIA
     Dosage: 1 1 PER WEEK TAKEN BY MOUTH
     Route: 048
     Dates: start: 20100104, end: 20140621
  2. FOSAMAX [Suspect]
     Active Substance: ALENDRONATE SODIUM
     Indication: OSTEOPENIA
     Dosage: 1 PILL 1 PER WEEK TAKEN BY MOUTH
     Route: 048
     Dates: start: 20040107, end: 20100811

REACTIONS (2)
  - Osteogenesis imperfecta [None]
  - Femur fracture [None]

NARRATIVE: CASE EVENT DATE: 20140621
